FAERS Safety Report 4518390-8 (Version None)
Quarter: 2004Q4

REPORT INFORMATION
  Report Type: 
  Country: None (occurrence: None)
  Receive Date: 20041029
  Receipt Date: 20040818
  Transmission Date: 20050328
  Serious: Yes (Hospitalization)
  Sender: FDA-Public Use
  Company Number: 200416235US

PATIENT
  Age: 42 Year
  Sex: Female

DRUGS (4)
  1. KETEK [Suspect]
     Indication: SINUSITIS
     Dosage: 800 MG QD
     Dates: start: 20040817, end: 20040817
  2. METOPROLOL SUCCINATE (TOPROL XL) [Concomitant]
     Indication: BRONCHITIS
  3. CELEBREX [Concomitant]
  4. DECONGESTANT [Concomitant]

REACTIONS (1)
  - ANAPHYLACTIC REACTION [None]
